FAERS Safety Report 7419774-0 (Version None)
Quarter: 2011Q2

REPORT INFORMATION
  Report Type: 
  Country: None (occurrence: None)
  Receive Date: 20110418
  Receipt Date: 20110411
  Transmission Date: 20111010
  Serious: Yes (Death, Life-Threatening)
  Sender: FDA-Public Use
  Company Number: DE-CELGENEUS-062-C5013-08020726

PATIENT
  Sex: Female
  Weight: 46 kg

DRUGS (2)
  1. DEXAMETHASONE [Suspect]
     Indication: MULTIPLE MYELOMA
     Route: 048
     Dates: start: 20040401
  2. LENALIDOMIDE [Suspect]
     Indication: MULTIPLE MYELOMA
     Dosage: 25 MILLIGRAM
     Route: 048
     Dates: start: 20040401, end: 20080131

REACTIONS (1)
  - LUNG ADENOCARCINOMA [None]
